FAERS Safety Report 6611824-4 (Version None)
Quarter: 2010Q1

REPORT INFORMATION
  Report Type: 
  Country: None (occurrence: None)
  Receive Date: 20100303
  Receipt Date: 20100222
  Transmission Date: 20100710
  Serious: Yes (Other)
  Sender: FDA-Public Use
  Company Number: ES-ROCHE-686651

PATIENT
  Age: 52 Year
  Sex: Female

DRUGS (7)
  1. TRASTUZUMAB [Suspect]
     Indication: BREAST CANCER
     Route: 065
     Dates: start: 20041001, end: 20060101
  2. TRASTUZUMAB [Suspect]
     Dosage: THERAPY INTERRUPTED.
     Route: 065
     Dates: start: 20070901, end: 20080101
  3. TRASTUZUMAB [Suspect]
     Route: 065
     Dates: start: 20080701
  4. SUNITINIB MALATE [Suspect]
     Indication: BREAST CANCER
     Dosage: THERAPY INTERRUPTED. IN 28 DAY CYCLES.
     Route: 065
     Dates: start: 20070901
  5. SUNITINIB MALATE [Suspect]
     Dosage: DOSAGE REDUCED.
     Route: 065
     Dates: end: 20080101
  6. SUNITINIB MALATE [Suspect]
     Dosage: PERMANENTLY SUSPENDED.
     Route: 065
     Dates: start: 20080301, end: 20080101
  7. PACLITAXEL [Suspect]
     Indication: BREAST CANCER
     Route: 065
     Dates: start: 20041001, end: 20060101

REACTIONS (9)
  - DIARRHOEA [None]
  - DYSGEUSIA [None]
  - EJECTION FRACTION DECREASED [None]
  - FATIGUE [None]
  - HYPERTENSION [None]
  - HYPOTHYROIDISM [None]
  - MUCOSAL INFLAMMATION [None]
  - NEUROTOXICITY [None]
  - SKIN HYPERPIGMENTATION [None]
